FAERS Safety Report 14467607 (Version 2)
Quarter: 2018Q1

REPORT INFORMATION
  Report Type: Other
  Country: IE (occurrence: IE)
  Receive Date: 20180131
  Receipt Date: 20180213
  Transmission Date: 20180509
  Serious: Yes (Other)
  Sender: FDA-Public Use
  Company Number: IE-MACLEODS PHARMACEUTICALS US LTD-MAC2018008984

PATIENT

DRUGS (3)
  1. BOSENTAN. [Suspect]
     Active Substance: BOSENTAN
     Indication: PULMONARY HYPERTENSION
     Dosage: 2 MG, QD, 1 MG/KG, 2X/DAY
     Route: 065
  2. OXYGEN. [Concomitant]
     Active Substance: OXYGEN
     Indication: OXYGEN SATURATION DECREASED
     Dosage: UNK
     Route: 065
  3. SILDENAFIL FILM COATED TABLET [Suspect]
     Active Substance: SILDENAFIL
     Indication: PULMONARY HYPERTENSION
     Dosage: 3 MG/KG, QD 1 MG/KG, 3X/DAY
     Route: 048

REACTIONS (4)
  - Coronary artery disease [Unknown]
  - Drug administered to patient of inappropriate age [Unknown]
  - Congenital coronary artery malformation [Recovered/Resolved]
  - Coronary artery dilatation [Recovered/Resolved]
